FAERS Safety Report 9219602 (Version 1)
Quarter: 2013Q1

REPORT INFORMATION
  Report Type: Spontaneous
  Country: US (occurrence: None)
  Receive Date: 20120827
  Receipt Date: 20120827
  Transmission Date: 20140127
  Serious: Yes (Hospitalization)
  Sender: FDA-Public Use
  Company Number: KY201200080

PATIENT
  Age: 21 Year
  Sex: Female

DRUGS (1)
  1. MAKENA [Suspect]
     Indication: PREMATURE DELIVERY
     Dosage: ONCE WEEKLY INTRAMUSCULAR.
     Dates: start: 20120309, end: 20120427

REACTIONS (1)
  - Premature labour [None]
